FAERS Safety Report 10761382 (Version 2)
Quarter: 2015Q2

REPORT INFORMATION
  Report Type: Report from Study
  Country: CA (occurrence: CA)
  Receive Date: 20150204
  Receipt Date: 20150622
  Transmission Date: 20150821
  Serious: Yes (Other)
  Sender: FDA-Public Use
  Company Number: CA-AMGEN-CANSL2015009233

PATIENT
  Age: 76 Year
  Sex: Female

DRUGS (1)
  1. PROLIA [Suspect]
     Active Substance: DENOSUMAB
     Indication: OSTEOPOROSIS POSTMENOPAUSAL
     Dosage: 60 MG, Q6MO
     Route: 058
     Dates: start: 20130528

REACTIONS (6)
  - Adverse drug reaction [Unknown]
  - Heart rate irregular [Unknown]
  - Dysphagia [Recovered/Resolved]
  - Irritability [Unknown]
  - Hypertension [Unknown]
  - Thyroidectomy [Recovered/Resolved]
